FAERS Safety Report 4433104-8 (Version None)
Quarter: 2004Q3

REPORT INFORMATION
  Report Type: 
  Country: None (occurrence: None)
  Receive Date: 20040823
  Receipt Date: 20040823
  Transmission Date: 20050211
  Serious: Yes (Other)
  Sender: FDA-Public Use
  Company Number: ENTC2004-0157

PATIENT

DRUGS (1)
  1. STALEVO 100 [Suspect]
     Dosage: 100 MG/25 MG/200 MG 3 TIMES DAILY, ORAL
     Route: 048
     Dates: start: 20040711, end: 20040725

REACTIONS (1)
  - PHOTOSENSITIVITY REACTION [None]
